FAERS Safety Report 12926990 (Version 1)
Quarter: 2016Q4

REPORT INFORMATION
  Report Type: Spontaneous
  Country: CN (occurrence: CN)
  Receive Date: 20161108
  Receipt Date: 20161108
  Transmission Date: 20170207
  Serious: Yes (Hospitalization)
  Sender: FDA-Public Use
  Company Number: CN-ASTRAZENECA-2016SF16966

PATIENT
  Age: 23023 Day
  Sex: Female
  Weight: 50 kg

DRUGS (3)
  1. TICAGRELOR [Suspect]
     Active Substance: TICAGRELOR
     Indication: COAGULOPATHY
     Route: 048
     Dates: start: 20160410, end: 20160507
  2. ASPIRIN. [Suspect]
     Active Substance: ASPIRIN
     Indication: COAGULOPATHY
     Route: 048
     Dates: start: 20150410, end: 20160507
  3. CLOPIDOGREL [Concomitant]
     Active Substance: CLOPIDOGREL BISULFATE
     Dates: start: 20150410, end: 201604

REACTIONS (3)
  - Duodenal ulcer [Recovering/Resolving]
  - Faeces discoloured [Recovering/Resolving]
  - Upper gastrointestinal haemorrhage [Recovered/Resolved]

NARRATIVE: CASE EVENT DATE: 20160508
